FAERS Safety Report 25926765 (Version 1)
Quarter: 2025Q4

REPORT INFORMATION
  Report Type: Spontaneous
  Country: US (occurrence: None)
  Receive Date: 20251015
  Receipt Date: 20251015
  Transmission Date: 20260118
  Serious: Yes (Hospitalization)
  Sender: FDA-CTU
  Company Number: None

PATIENT
  Sex: Male

DRUGS (10)
  1. ABIRATERONE ACETATE [Suspect]
     Active Substance: ABIRATERONE ACETATE
     Indication: Prostate cancer
     Dosage: TAKE 4 TABLETS (1000 MG) BY MOUTH EVERY MORNING BEFORE BREAKFAST?
     Route: 048
     Dates: start: 20250611
  2. ATORVASTATIN [Concomitant]
     Active Substance: ATORVASTATIN
  3. B-COMPLEX/C [Concomitant]
  4. CALCIUM\VITAMIN D [Concomitant]
     Active Substance: CALCIUM\VITAMIN D
  5. CHLORTHALIDONE [Concomitant]
     Active Substance: CHLORTHALIDONE
  6. GABAPENTIN [Concomitant]
     Active Substance: GABAPENTIN
  7. GLUCOSAMINE/ CHONDRTN [Concomitant]
  8. ACETAMINOPHEN\HYDROCODONE [Concomitant]
     Active Substance: ACETAMINOPHEN\HYDROCODONE
  9. ALBUTEROL\IPRATROPIUM BROMIDE [Concomitant]
     Active Substance: ALBUTEROL\IPRATROPIUM BROMIDE
  10. LORATADINE [Concomitant]
     Active Substance: LORATADINE

REACTIONS (3)
  - Fatigue [None]
  - Hot flush [None]
  - Pneumonia [None]
